FAERS Safety Report 13522580 (Version 1)
Quarter: 2017Q2

REPORT INFORMATION
  Report Type: Spontaneous
  Country: US (occurrence: US)
  Receive Date: 20170508
  Receipt Date: 20170508
  Transmission Date: 20170830
  Serious: Yes (Hospitalization)
  Sender: FDA-Public Use
  Company Number: US-PFIZER INC-2017192615

PATIENT
  Age: 63 Year
  Sex: Male

DRUGS (4)
  1. VORICONAZOLE. [Suspect]
     Active Substance: VORICONAZOLE
     Dosage: UNK
  2. JAKAFI [Interacting]
     Active Substance: RUXOLITINIB
     Indication: POLYCYTHAEMIA VERA
     Dosage: 15 MG, UNK
     Route: 048
  3. JAKAFI [Interacting]
     Active Substance: RUXOLITINIB
     Dosage: 5 MG, DAILY
     Route: 048
  4. JAKAFI [Interacting]
     Active Substance: RUXOLITINIB
     Dosage: 5 MG, 2X/DAY
     Route: 048
     Dates: start: 20170216

REACTIONS (1)
  - Drug interaction [Unknown]
